FAERS Safety Report 14700418 (Version 1)
Quarter: 2018Q1

REPORT INFORMATION
  Report Type: Spontaneous
  Country: US (occurrence: US)
  Receive Date: 20180330
  Receipt Date: 20180330
  Transmission Date: 20180509
  Serious: Yes (Hospitalization, Disabling, Other)
  Sender: FDA-Public Use
  Company Number: None

PATIENT
  Sex: Female
  Weight: 72.58 kg

DRUGS (8)
  1. MONTELUKAST [Concomitant]
     Active Substance: MONTELUKAST SODIUM
  2. CLARITIN [Concomitant]
     Active Substance: LORATADINE
  3. CENTRUM [Concomitant]
     Active Substance: VITAMINS
  4. TOLERODINE [Concomitant]
  5. VITAMIN D [Concomitant]
     Active Substance: CHOLECALCIFEROL
  6. ALPRAZOLAM. [Concomitant]
     Active Substance: ALPRAZOLAM
  7. XYZAL [Concomitant]
     Active Substance: LEVOCETIRIZINE DIHYDROCHLORIDE
  8. ATORVASTATIN 40MG [Suspect]
     Active Substance: ATORVASTATIN
     Dosage: ?          QUANTITY:OM FILI{LD~LIGF;?
     Route: 048

REACTIONS (7)
  - Gait disturbance [None]
  - Walking aid user [None]
  - Muscle injury [None]
  - Renal disorder [None]
  - Gait inability [None]
  - Hypertension [None]
  - Vomiting [None]
